FAERS Safety Report 13297588 (Version 1)
Quarter: 2017Q1

REPORT INFORMATION
  Report Type: Spontaneous
  Country: IT (occurrence: IT)
  Receive Date: 20170306
  Receipt Date: 20170306
  Transmission Date: 20170428
  Serious: Yes (Other)
  Sender: FDA-Public Use
  Company Number: IT-ASTELLAS-2017US008371

PATIENT
  Age: 17 Month
  Sex: Female

DRUGS (1)
  1. TACROLIMUS. [Suspect]
     Active Substance: TACROLIMUS
     Indication: DERMATITIS BULLOUS
     Dosage: UNK, UNKNOWN FREQ.
     Route: 065

REACTIONS (3)
  - Off label use [Unknown]
  - Immune system disorder [Unknown]
  - Pemphigoid [Recovered/Resolved]
